FAERS Safety Report 15794624 (Version 2)
Quarter: 2019Q1

REPORT INFORMATION
  Report Type: Spontaneous
  Country: JP (occurrence: JP)
  Receive Date: 20190107
  Receipt Date: 20190122
  Transmission Date: 20190417
  Serious: Yes (Hospitalization)
  Sender: FDA-Public Use
  Company Number: JP-ELI_LILLY_AND_COMPANY-JP201812011927

PATIENT
  Age: 68 Year
  Sex: Male

DRUGS (1)
  1. HUMALOG MIX50/50 KWIKPEN [Suspect]
     Active Substance: INSULIN LISPRO
     Indication: DIABETES MELLITUS
     Dosage: 6 IU, TID
     Route: 058
     Dates: end: 201811

REACTIONS (1)
  - Immune thrombocytopenic purpura [Recovering/Resolving]
